FAERS Safety Report 11626854 (Version 1)
Quarter: 2015Q4

REPORT INFORMATION
  Report Type: Spontaneous
  Country: US (occurrence: US)
  Receive Date: 20151013
  Receipt Date: 20151013
  Transmission Date: 20160304
  Serious: No
  Sender: FDA-Public Use
  Company Number: US-009507513-1510USA004942

PATIENT
  Age: 23 Year
  Sex: Female
  Weight: 81.63 kg

DRUGS (1)
  1. NEXPLANON [Suspect]
     Active Substance: ETONOGESTREL
     Dosage: LEFT ARM, EVERY THREE YEARS
     Route: 059
     Dates: start: 20120802

REACTIONS (2)
  - Incorrect drug administration duration [Unknown]
  - Expired product administered [Unknown]

NARRATIVE: CASE EVENT DATE: 20150803
